FAERS Safety Report 22259767 (Version 2)
Quarter: 2023Q2

REPORT INFORMATION
  Report Type: Spontaneous
  Country: JP (occurrence: JP)
  Receive Date: 20230427
  Receipt Date: 20230519
  Transmission Date: 20230721
  Serious: Yes (Other)
  Sender: FDA-Public Use
  Company Number: JP-PFIZER INC-202300133657

PATIENT
  Age: 21 Year
  Sex: Female
  Weight: 32.3 kg

DRUGS (5)
  1. ZYVOX [Interacting]
     Active Substance: LINEZOLID
     Indication: Subcutaneous abscess
     Dosage: 600 MG, DAILY
     Route: 041
     Dates: start: 20230318
  2. SEROQUEL [Interacting]
     Active Substance: QUETIAPINE FUMARATE
     Dosage: 350 MG, DAILY (IN DIVIDED DOSES 3 TIMES DAILY)
     Route: 048
  3. RIVOTRIL [Interacting]
     Active Substance: CLONAZEPAM
     Dosage: 1 MG, 1X/DAY
     Route: 048
  4. RIVOTRIL [Interacting]
     Active Substance: CLONAZEPAM
     Dosage: 0.75 MG, DAILY
     Dates: start: 20230330
  5. RIVOTRIL [Interacting]
     Active Substance: CLONAZEPAM
     Dosage: 0.5 MG, 1X/DAY
     Route: 048
     Dates: start: 20230406

REACTIONS (6)
  - Hypophagia [Unknown]
  - Drug interaction [Unknown]
  - Tremor [Not Recovered/Not Resolved]
  - Tinnitus [Not Recovered/Not Resolved]
  - Blood creatine phosphokinase decreased [Recovering/Resolving]
  - Platelet count decreased [Unknown]

NARRATIVE: CASE EVENT DATE: 20230327
